FAERS Safety Report 14161443 (Version 1)
Quarter: 2017Q4

REPORT INFORMATION
  Report Type: Spontaneous
  Country: IL (occurrence: IL)
  Receive Date: 20171106
  Receipt Date: 20171106
  Transmission Date: 20180321
  Serious: Yes (Other)
  Sender: FDA-Public Use
  Company Number: IL-TEVA-820298ACC

PATIENT
  Age: 62 Year
  Sex: Female
  Weight: 76.8 kg

DRUGS (7)
  1. AMLOW [Suspect]
     Active Substance: AMLODIPINE MALEATE
     Indication: BLOOD PRESSURE INCREASED
     Dosage: 10 MILLIGRAM DAILY;
     Dates: end: 20160428
  2. NORVASC [Suspect]
     Active Substance: AMLODIPINE BESYLATE
     Indication: BLOOD PRESSURE INCREASED
     Dosage: 10 MILLIGRAM DAILY;
  3. LOSARTAN. [Concomitant]
     Active Substance: LOSARTAN
  4. LOPRESSOR [Concomitant]
     Active Substance: METOPROLOL TARTRATE
     Dosage: 200 MILLIGRAM DAILY;
  5. AMLODIPINE [Suspect]
     Active Substance: AMLODIPINE BESYLATE
     Indication: HYPERTENSION
     Dosage: 10 MILLIGRAM DAILY;
     Dates: end: 2016
  6. SIMVAXON [Concomitant]
     Indication: BLOOD CHOLESTEROL INCREASED
     Dosage: 20 MILLIGRAM DAILY;
  7. DISOTHIAZIDE [Concomitant]
     Active Substance: HYDROCHLOROTHIAZIDE
     Dosage: .5 DOSAGE FORMS DAILY;

REACTIONS (9)
  - Decreased activity [Unknown]
  - Gingival pain [Unknown]
  - Gingival hypertrophy [Unknown]
  - Gingival erythema [Unknown]
  - Gingivitis [Unknown]
  - Gingival swelling [Unknown]
  - Impaired quality of life [Unknown]
  - Gingival hypertrophy [Unknown]
  - Noninfective gingivitis [Unknown]

NARRATIVE: CASE EVENT DATE: 2015
